FAERS Safety Report 8327665-6 (Version None)
Quarter: 2012Q2

REPORT INFORMATION
  Report Type: 
  Country: None (occurrence: None)
  Receive Date: 20120502
  Receipt Date: 20120419
  Transmission Date: 20120825
  Serious: Yes (Hospitalization)
  Sender: FDA-Public Use
  Company Number: US-PFIZER INC-2012098458

PATIENT
  Sex: Female
  Weight: 72.562 kg

DRUGS (1)
  1. EFFEXOR XR [Suspect]
     Indication: DEPRESSION
     Dosage: TAKING 150MG AND 75MG TOGETHER,DAILY
     Dates: start: 19990101, end: 20101201

REACTIONS (3)
  - VOMITING [None]
  - WITHDRAWAL SYNDROME [None]
  - NAUSEA [None]
